FAERS Safety Report 4440580-3 (Version None)
Quarter: 2004Q3

REPORT INFORMATION
  Report Type: 
  Country: None (occurrence: None)
  Receive Date: 20040903
  Receipt Date: 20040825
  Transmission Date: 20050211
  Serious: Yes (Other)
  Sender: FDA-Public Use
  Company Number: US-ROCHE-378963

PATIENT
  Age: 55 Year
  Sex: Female
  Weight: 50.8 kg

DRUGS (2)
  1. PEGASYS [Suspect]
     Route: 058
     Dates: start: 20040815, end: 20040815
  2. COPEGUS [Suspect]
     Dosage: 3 IN THE MORNING AND 2 IN THE EVENING.
     Route: 048
     Dates: start: 20040815, end: 20040815

REACTIONS (1)
  - CEREBROVASCULAR ACCIDENT [None]
